FAERS Safety Report 12966210 (Version 1)
Quarter: 2016Q4

REPORT INFORMATION
  Report Type: Spontaneous
  Country: US (occurrence: US)
  Receive Date: 20161118
  Receipt Date: 20161118
  Transmission Date: 20170207
  Serious: Yes (Hospitalization)
  Sender: FDA-Public Use
  Company Number: None

PATIENT
  Age: 78 Year
  Sex: Male
  Weight: 105.1 kg

DRUGS (1)
  1. LEVOFLOXACIN. [Suspect]
     Active Substance: LEVOFLOXACIN
     Indication: UPPER RESPIRATORY TRACT INFECTION
     Route: 048
     Dates: start: 20160905, end: 20160908

REACTIONS (5)
  - Dysarthria [None]
  - Paraesthesia [None]
  - Dizziness [None]
  - International normalised ratio increased [None]
  - Neuropathy peripheral [None]

NARRATIVE: CASE EVENT DATE: 20160906
